FAERS Safety Report 11525177 (Version 3)
Quarter: 2015Q4

REPORT INFORMATION
  Report Type: Report from Study
  Country: US (occurrence: US)
  Receive Date: 20150918
  Receipt Date: 20151217
  Transmission Date: 20160304
  Serious: Yes (Hospitalization)
  Sender: FDA-Public Use
  Company Number: US-VERTEX PHARMACEUTICALS-2015-003843

PATIENT
  Age: 15 Year
  Sex: Female

DRUGS (15)
  1. CREON [Concomitant]
     Active Substance: PANCRELIPASE AMYLASE\PANCRELIPASE LIPASE\PANCRELIPASE PROTEASE
     Dosage: 4 DF, TID
     Route: 048
     Dates: start: 201508
  2. NOVOLOG [Concomitant]
     Active Substance: INSULIN ASPART
     Dosage: UNK, PRN
     Dates: start: 201508
  3. FLONASE [Concomitant]
     Active Substance: FLUTICASONE PROPIONATE
     Dosage: 1 SPRAY EACH NOSTRIL ONCE DAILY
     Route: 055
     Dates: start: 201508
  4. PULMOZYME [Concomitant]
     Active Substance: DORNASE ALFA
     Dosage: 1MG/1ML SOLUTION ONCE DAILY
     Route: 055
     Dates: start: 201508
  5. TUMS [Concomitant]
     Active Substance: CALCIUM CARBONATE
     Dosage: 1.5 DF, TID
     Route: 048
     Dates: start: 201508
  6. LEVEMIR [Concomitant]
     Active Substance: INSULIN DETEMIR
     Dosage: 18 UNITS SQ NIGHTLY
     Dates: start: 201508
  7. OMEPRAZOLE. [Concomitant]
     Active Substance: OMEPRAZOLE
     Dosage: 40 MG, DAILY
     Route: 048
     Dates: start: 201508
  8. MIRALAX [Concomitant]
     Active Substance: POLYETHYLENE GLYCOL 3350
     Dosage: 17 G, PRN
     Route: 048
     Dates: start: 201508
  9. VITAMIN D3 [Concomitant]
     Active Substance: CHOLECALCIFEROL
     Dosage: 3 DF, DAILY
     Route: 048
     Dates: start: 201508
  10. VITAMIN E [Concomitant]
     Active Substance: .ALPHA.-TOCOPHEROL
     Dosage: 100 MCG MWF
     Route: 048
     Dates: start: 201508
  11. ORKAMBI [Suspect]
     Active Substance: IVACAFTOR\LUMACAFTOR
     Indication: CYSTIC FIBROSIS
     Dosage: 200MG/125MG, BID
     Route: 048
     Dates: start: 20150818
  12. DOCUSATE SODIUM. [Concomitant]
     Active Substance: DOCUSATE SODIUM
     Dosage: 100 MG, PRN
     Route: 048
     Dates: start: 201508
  13. SALINE ORAL OTC [Concomitant]
     Active Substance: SODIUM CHLORIDE
     Dosage: UNK, BID
     Route: 055
     Dates: start: 201508
  14. AZITHROMYCIN [Concomitant]
     Active Substance: AZITHROMYCIN ANHYDROUS
     Dosage: 250 MG, MWF
     Dates: start: 201508
  15. DOXYCYCLINE. [Concomitant]
     Active Substance: DOXYCYCLINE
     Dosage: 100 MG, BID
     Route: 048
     Dates: start: 201508

REACTIONS (2)
  - Alopecia [Unknown]
  - Hospitalisation [Not Recovered/Not Resolved]

NARRATIVE: CASE EVENT DATE: 201509
